FAERS Safety Report 6108771-3 (Version None)
Quarter: 2009Q1

REPORT INFORMATION
  Report Type: 
  Country: None (occurrence: None)
  Receive Date: 20090310
  Receipt Date: 20090305
  Transmission Date: 20090719
  Serious: Yes (Hospitalization)
  Sender: FDA-Public Use
  Company Number: FR-JNJFOC-20090301311

PATIENT
  Age: 76 Year
  Sex: Male

DRUGS (12)
  1. OFLOCET [Suspect]
     Indication: AORTIC VALVE REPLACEMENT
     Route: 048
  2. DITROPAN [Suspect]
     Indication: AORTIC VALVE REPLACEMENT
     Route: 048
  3. EFFERALGAN [Concomitant]
     Route: 065
  4. INIPOMP [Concomitant]
     Route: 065
  5. ASPIRIN [Concomitant]
     Route: 065
  6. XATRAL [Concomitant]
     Route: 065
  7. ACTISKENAN [Concomitant]
     Route: 065
  8. NICARDIPINE HCL [Concomitant]
     Route: 065
  9. TOPLEXIL [Concomitant]
     Route: 065
  10. DALACINE [Concomitant]
     Route: 065
  11. FUCIDINE CAP [Concomitant]
     Route: 065
  12. LASIX [Concomitant]
     Route: 065

REACTIONS (4)
  - CONFUSIONAL STATE [None]
  - HALLUCINATION [None]
  - MYOCLONUS [None]
  - RENAL FAILURE [None]
